FAERS Safety Report 9058616 (Version 1)
Quarter: 2013Q1

REPORT INFORMATION
  Report Type: Spontaneous
  Country: US (occurrence: US)
  Receive Date: 20130211
  Receipt Date: 20130211
  Transmission Date: 20140127
  Serious: Yes (Other)
  Sender: FDA-Public Use
  Company Number: US-GENZYME-CERZ-1002803

PATIENT
  Sex: Male

DRUGS (4)
  1. CEREZYME [Suspect]
     Indication: GAUCHER^S DISEASE
     Dosage: UNK
     Route: 042
     Dates: end: 200912
  2. VPRIV [Suspect]
     Indication: GAUCHER^S DISEASE
     Dosage: UNK
     Route: 065
  3. ZAVESCA [Concomitant]
     Indication: GAUCHER^S DISEASE
     Dosage: UNK
     Route: 065
  4. TALIGLUCERASE [Concomitant]
     Indication: GAUCHER^S DISEASE
     Dosage: UNK
     Route: 065

REACTIONS (2)
  - Lymphoma [Unknown]
  - Hepatitis C [Unknown]
